FAERS Safety Report 22989398 (Version 11)
Quarter: 2024Q2

REPORT INFORMATION
  Report Type: Spontaneous
  Country: CZ (occurrence: CZ)
  Receive Date: 20230927
  Receipt Date: 20240402
  Transmission Date: 20240716
  Serious: Yes (Life-Threatening, Hospitalization, Other)
  Sender: FDA-Public Use
  Company Number: CZ-PFIZER INC-PV202300157894

PATIENT
  Age: 42 Year
  Sex: Female

DRUGS (25)
  1. AVIBACTAM [Suspect]
     Active Substance: AVIBACTAM
     Indication: Product used for unknown indication
     Dosage: UNK
     Route: 065
  2. KETAMINE [Suspect]
     Active Substance: KETAMINE
     Indication: Product used for unknown indication
     Dosage: UNK
     Route: 065
  3. LINEZOLID [Suspect]
     Active Substance: LINEZOLID
     Indication: Antibiotic therapy
     Dosage: UNK
     Route: 065
  4. LINEZOLID [Suspect]
     Active Substance: LINEZOLID
     Indication: Asthma
     Dosage: UNK
     Route: 065
  5. LEVOFLOXACIN [Suspect]
     Active Substance: LEVOFLOXACIN
     Indication: Antibiotic therapy
     Dosage: UNK
     Route: 065
  6. LEVOFLOXACIN [Suspect]
     Active Substance: LEVOFLOXACIN
     Indication: Pneumonia
     Dosage: UNK
     Route: 065
  7. LEVOFLOXACIN [Suspect]
     Active Substance: LEVOFLOXACIN
     Indication: Condition aggravated
  8. MEROPENEM [Suspect]
     Active Substance: MEROPENEM
     Indication: Antibiotic therapy
     Dosage: UNK
     Route: 065
  9. MEROPENEM [Suspect]
     Active Substance: MEROPENEM
     Indication: Condition aggravated
  10. MEROPENEM [Suspect]
     Active Substance: MEROPENEM
     Indication: Pneumonia
  11. MEROPENEM [Suspect]
     Active Substance: MEROPENEM
     Indication: Pneumonia
     Dosage: UNK
     Route: 065
  12. MEROPENEM [Suspect]
     Active Substance: MEROPENEM
     Indication: Condition aggravated
  13. METRONIDAZOLE [Suspect]
     Active Substance: METRONIDAZOLE
     Indication: Antibiotic therapy
     Dosage: UNK
     Route: 065
  14. METRONIDAZOLE [Suspect]
     Active Substance: METRONIDAZOLE
     Indication: Sepsis
  15. METRONIDAZOLE [Suspect]
     Active Substance: METRONIDAZOLE
     Indication: Sepsis
  16. MOXIFLOXACIN [Suspect]
     Active Substance: MOXIFLOXACIN
     Indication: Antibiotic therapy
     Dosage: UNK
     Route: 065
  17. MOXIFLOXACIN [Suspect]
     Active Substance: MOXIFLOXACIN
     Indication: Asthma
     Dosage: UNK
     Route: 065
  18. MOXIFLOXACIN [Suspect]
     Active Substance: MOXIFLOXACIN
     Indication: Sepsis
  19. NOREPINEPHRINE [Suspect]
     Active Substance: NOREPINEPHRINE\NOREPINEPHRINE BITARTRATE
     Indication: Cardiovascular disorder
     Dosage: 0.47 MICROGRAM/KILOGRAM (0.47 ?,G/ KG/MIN)
     Route: 065
  20. VORICONAZOLE [Suspect]
     Active Substance: VORICONAZOLE
     Indication: Asthma
     Dosage: 600 MILLIGRAM, ONCE A DAY
     Route: 042
  21. VORICONAZOLE [Suspect]
     Active Substance: VORICONAZOLE
     Indication: Aspergillus infection
     Dosage: UNK
     Route: 065
  22. CRESEMBA [Concomitant]
     Active Substance: ISAVUCONAZONIUM SULFATE
     Indication: Antifungal treatment
     Dosage: UNK
     Route: 065
  23. ANIDULAFUNGIN [Concomitant]
     Active Substance: ANIDULAFUNGIN
     Indication: Product used for unknown indication
     Dosage: UNK
     Route: 065
  24. NOREPINEPHRINE [Concomitant]
     Active Substance: NOREPINEPHRINE\NOREPINEPHRINE BITARTRATE
     Indication: Product used for unknown indication
     Dosage: 0.47 MG/KG/MIN
     Route: 065
  25. NOREPINEPHRINE [Concomitant]
     Active Substance: NOREPINEPHRINE\NOREPINEPHRINE BITARTRATE
     Dosage: 0.47 MG/KG/MIN
     Route: 065

REACTIONS (12)
  - Respiratory acidosis [Unknown]
  - Respiratory failure [Unknown]
  - Hypoxia [Recovering/Resolving]
  - Drug interaction [Recovered/Resolved]
  - Condition aggravated [Recovering/Resolving]
  - Disease progression [Recovered/Resolved]
  - Sepsis [Recovered/Resolved]
  - Therapeutic product effect incomplete [Unknown]
  - Liver disorder [Recovered/Resolved]
  - Drug level below therapeutic [Recovered/Resolved]
  - Drug ineffective [Recovered/Resolved]
  - No adverse event [Unknown]
